FAERS Safety Report 20739507 (Version 5)
Quarter: 2022Q4

REPORT INFORMATION
  Report Type: Spontaneous
  Country: US (occurrence: US)
  Receive Date: 20220422
  Receipt Date: 20221220
  Transmission Date: 20230113
  Serious: Yes (Other)
  Sender: FDA-Public Use
  Company Number: US-PFIZER INC-202200575221

PATIENT
  Age: 57 Year
  Sex: Male

DRUGS (3)
  1. BENEFIX [Suspect]
     Active Substance: COAGULATION FACTOR IX RECOMBINANT HUMAN\ISOPROPYL ALCOHOL
     Indication: Factor IX deficiency
     Dosage: 60 IU/KG, 1X/DAY (FOR MILD/MODERATE BLEEDING)
  2. BENEFIX [Suspect]
     Active Substance: COAGULATION FACTOR IX RECOMBINANT HUMAN\ISOPROPYL ALCOHOL
     Dosage: 120 IU/KG, 1X/DAY (SEVERE BLEEDING)
  3. BENEFIX [Suspect]
     Active Substance: COAGULATION FACTOR IX RECOMBINANT HUMAN\ISOPROPYL ALCOHOL
     Dosage: 11280 IU, DAILY (11,280 UNITS IV DAILY PM SEVERE BLEEDING; PLUS/MINUS 10% BASED ON AVAILABLE ASSAYS)
     Route: 042

REACTIONS (9)
  - Haemorrhage [Unknown]
  - Skeletal injury [Unknown]
  - Conjunctival haemorrhage [Unknown]
  - Haematoma [Unknown]
  - Off label use [Unknown]
  - Arthralgia [Unknown]
  - Musculoskeletal disorder [Unknown]
  - Joint range of motion decreased [Unknown]
  - Wound [Unknown]
